FAERS Safety Report 10034354 (Version 1)
Quarter: 2014Q1

REPORT INFORMATION
  Report Type: Spontaneous
  Country: US (occurrence: None)
  Receive Date: 20140321
  Receipt Date: 20140321
  Transmission Date: 20141002
  Serious: Yes (Hospitalization)
  Sender: FDA-Public Use
  Company Number: 2014-000583

PATIENT
  Age: 87 Year
  Sex: Female
  Weight: 63 kg

DRUGS (11)
  1. DELZICOL [Suspect]
     Indication: DIARRHOEA
     Route: 048
     Dates: start: 20140214
  2. MIRTAZAPINE [Concomitant]
  3. ASIPRIN [Concomitant]
  4. DONEPEZIL [Concomitant]
  5. IMODIUM [Concomitant]
  6. PANTOPRAZOLE [Concomitant]
  7. BUDESONIDE [Concomitant]
  8. IRON [Concomitant]
  9. PERCOCET [Concomitant]
  10. GABAPENTIN [Concomitant]
  11. CENTRUM SLIVER [Concomitant]

REACTIONS (3)
  - Infectious colitis [None]
  - Drug ineffective [None]
  - Medication residue present [None]
